FAERS Safety Report 6881960-6 (Version None)
Quarter: 2010Q3

REPORT INFORMATION
  Report Type: 
  Country: None (occurrence: None)
  Receive Date: 20100727
  Receipt Date: 20100712
  Transmission Date: 20110219
  Serious: Yes (Other)
  Sender: FDA-Public Use
  Company Number: US-MYLANLABS-2010S1010316

PATIENT
  Age: 54 Year
  Sex: Female

DRUGS (7)
  1. FENTANYL-100 [Suspect]
     Indication: PAIN
     Route: 062
  2. FLEXERIL [Concomitant]
     Route: 048
  3. FOLIC ACID [Concomitant]
     Route: 048
  4. ORPHENADRINE CITRATE [Concomitant]
     Route: 048
  5. ATIVAN [Concomitant]
     Dosage: PRN
  6. VOLTAREN [Concomitant]
  7. LEFLUNOMIDE [Concomitant]
     Route: 048

REACTIONS (2)
  - DRUG WITHDRAWAL SYNDROME [None]
  - FALSE NEGATIVE INVESTIGATION RESULT [None]
